FAERS Safety Report 23319686 (Version 1)
Quarter: 2023Q4

REPORT INFORMATION
  Report Type: Spontaneous
  Country: IN (occurrence: IN)
  Receive Date: 20231220
  Receipt Date: 20231220
  Transmission Date: 20240109
  Serious: Yes (Other)
  Sender: FDA-Public Use
  Company Number: IN-002147023-NVSC2023IN265368

PATIENT
  Sex: Male

DRUGS (1)
  1. RANIBIZUMAB [Suspect]
     Active Substance: RANIBIZUMAB
     Indication: Product used for unknown indication
     Dosage: UNK UNK, OTHER
     Route: 050

REACTIONS (5)
  - Retinal haemorrhage [Unknown]
  - Cataract cortical [Unknown]
  - Cataract nuclear [Unknown]
  - Diabetic retinal oedema [Unknown]
  - Visual impairment [Unknown]
